FAERS Safety Report 10141597 (Version 1)
Quarter: 2014Q2

REPORT INFORMATION
  Report Type: Spontaneous
  Country: DE (occurrence: DE)
  Receive Date: 20140429
  Receipt Date: 20140429
  Transmission Date: 20141212
  Serious: Yes (Other)
  Sender: FDA-Public Use
  Company Number: DE-GLAXOSMITHKLINE-D0083757A

PATIENT
  Age: 55 Year
  Sex: Female

DRUGS (5)
  1. CEFUROXIM [Suspect]
     Indication: LARYNGITIS
     Dosage: 500MG TWICE PER DAY
     Route: 065
     Dates: start: 201210
  2. CIPROFLOXACIN [Suspect]
     Indication: VULVOVAGINAL MYCOTIC INFECTION
     Route: 065
     Dates: start: 201303, end: 201306
  3. NYSTATIN [Suspect]
     Indication: VULVOVAGINAL MYCOTIC INFECTION
     Route: 065
     Dates: start: 201303, end: 201306
  4. LACTIC ACID [Concomitant]
     Route: 065
  5. LACTOBACILLUS [Concomitant]
     Route: 065

REACTIONS (8)
  - Bacterial vaginosis [Recovered/Resolved]
  - Vulvovaginal mycotic infection [Recovered/Resolved]
  - Gastrointestinal fungal infection [Recovered/Resolved]
  - Vaginal disorder [Not Recovered/Not Resolved]
  - Vulvovaginal burning sensation [Not Recovered/Not Resolved]
  - Vulvovaginal pain [Unknown]
  - Ligament pain [Unknown]
  - Nerve injury [Unknown]
